FAERS Safety Report 24265595 (Version 1)
Quarter: 2024Q3

REPORT INFORMATION
  Report Type: Report from Study
  Country: US (occurrence: US)
  Receive Date: 20240829
  Receipt Date: 20240829
  Transmission Date: 20241016
  Serious: No
  Sender: SANDOZ
  Company Number: US-SANDOZ-SDZ2024US075765

PATIENT
  Age: 12 Year
  Sex: Male

DRUGS (4)
  1. OMNITROPE [Suspect]
     Active Substance: SOMATROPIN
     Route: 065
     Dates: start: 20240229
  2. OMNITROPE [Suspect]
     Active Substance: SOMATROPIN
     Route: 065
     Dates: start: 20240229
  3. OMNITROPE [Suspect]
     Active Substance: SOMATROPIN
     Indication: Product used for unknown indication
     Dosage: UNK
     Route: 065
     Dates: start: 20240229
  4. OMNITROPE [Suspect]
     Active Substance: SOMATROPIN
     Indication: Product used for unknown indication
     Dosage: UNK
     Route: 065
     Dates: start: 20240229

REACTIONS (2)
  - Circumstance or information capable of leading to medication error [Unknown]
  - Device breakage [Unknown]

NARRATIVE: CASE EVENT DATE: 20240820
